FAERS Safety Report 9057130 (Version 1)
Quarter: 2013Q1

REPORT INFORMATION
  Report Type: Spontaneous
  Country: AU (occurrence: AU)
  Receive Date: 20130131
  Receipt Date: 20130131
  Transmission Date: 20140127
  Serious: Yes (Hospitalization, Other)
  Sender: FDA-Public Use
  Company Number: AU-PFIZER INC-2013030580

PATIENT
  Sex: Female

DRUGS (1)
  1. PRISTIQ [Suspect]
     Indication: MAJOR DEPRESSION
     Dosage: 100 MG, 1X/DAY MORNING

REACTIONS (9)
  - Fall [Unknown]
  - Epilepsy [Unknown]
  - Loss of consciousness [Unknown]
  - Tremor [Unknown]
  - Incontinence [Unknown]
  - Dystonia [Unknown]
  - Eye movement disorder [Unknown]
  - Restless legs syndrome [Unknown]
  - Tardive dyskinesia [Unknown]
